FAERS Safety Report 6129887-1 (Version None)
Quarter: 2009Q1

REPORT INFORMATION
  Report Type: 
  Country: None (occurrence: None)
  Receive Date: 20090324
  Receipt Date: 20090310
  Transmission Date: 20090719
  Serious: Yes (Other)
  Sender: FDA-Public Use
  Company Number: US-PFIZER INC-2009181565

PATIENT
  Sex: Female
  Weight: 63 kg

DRUGS (3)
  1. PROVERA [Suspect]
     Indication: MENOPAUSE
     Dosage: 2.5 MG, UNK
     Route: 048
     Dates: start: 19910301, end: 19960501
  2. PREMARIN [Suspect]
     Indication: MENOPAUSE
     Dosage: 0.625 MG, UNK
     Dates: start: 19901101, end: 19930101
  3. MACROBID [Concomitant]
     Indication: CYSTITIS
     Dosage: UNK
     Dates: start: 19940101

REACTIONS (1)
  - BREAST CANCER [None]
